FAERS Safety Report 20029448 (Version 3)
Quarter: 2022Q1

REPORT INFORMATION
  Report Type: Spontaneous
  Country: US (occurrence: US)
  Receive Date: 20211103
  Receipt Date: 20220207
  Transmission Date: 20220423
  Serious: No
  Sender: FDA-Public Use
  Company Number: US-PFIZER INC-202101335885

PATIENT
  Age: 78 Year
  Sex: Male

DRUGS (2)
  1. GABAPENTIN [Suspect]
     Active Substance: GABAPENTIN
     Dosage: UNK
  2. PREGABALIN [Suspect]
     Active Substance: PREGABALIN
     Dosage: UNK

REACTIONS (7)
  - Drug hypersensitivity [Unknown]
  - Lip swelling [Recovering/Resolving]
  - Pharyngeal swelling [Unknown]
  - Lip pain [Not Recovered/Not Resolved]
  - Pain in extremity [Unknown]
  - Balance disorder [Unknown]
  - Muscular weakness [Unknown]
